FAERS Safety Report 18023411 (Version 1)
Quarter: 2020Q3

REPORT INFORMATION
  Report Type: Spontaneous
  Country: FR (occurrence: FR)
  Receive Date: 20200715
  Receipt Date: 20200715
  Transmission Date: 20201103
  Serious: Yes (Hospitalization)
  Sender: FDA-Public Use
  Company Number: FR-TEVA-2019-FR-1052350

PATIENT
  Age: 69 Year
  Sex: Female
  Weight: 76 kg

DRUGS (4)
  1. TRAMADOL (CHLORHYDRATE DE) [Suspect]
     Active Substance: TRAMADOL HYDROCHLORIDE
     Indication: NEURALGIA
     Dosage: NOT SPECIFIED
     Route: 048
     Dates: start: 20200131, end: 20200206
  2. PARACETAMOL [Concomitant]
     Active Substance: ACETAMINOPHEN
     Indication: NEURALGIA
     Dosage: IF NECESSARY
     Route: 048
  3. IBUPROFENE [Concomitant]
     Active Substance: IBUPROFEN
     Indication: NEURALGIA
     Dosage: ON DEMAND
     Route: 048
  4. PREGABALINE [Suspect]
     Active Substance: PREGABALIN
     Indication: NEURALGIA
     Route: 048
     Dates: start: 20190123, end: 20190131

REACTIONS (1)
  - Pancreatitis acute [Recovered/Resolved]

NARRATIVE: CASE EVENT DATE: 20190131
